FAERS Safety Report 7342538-3 (Version None)
Quarter: 2011Q1

REPORT INFORMATION
  Report Type: 
  Country: None (occurrence: None)
  Receive Date: 20110310
  Receipt Date: 20110221
  Transmission Date: 20110831
  Serious: Yes (Hospitalization, Other)
  Sender: FDA-Public Use
  Company Number: US-BAYER-201042064NA

PATIENT
  Sex: Female
  Weight: 86.621 kg

DRUGS (1)
  1. YAZ [Suspect]
     Indication: ORAL CONTRACEPTION
     Route: 048
     Dates: start: 20070801, end: 20090403

REACTIONS (3)
  - THROMBOPHLEBITIS SUPERFICIAL [None]
  - PULMONARY EMBOLISM [None]
  - PLEURITIC PAIN [None]
